FAERS Safety Report 11933179 (Version 2)
Quarter: 2016Q1

REPORT INFORMATION
  Report Type: Spontaneous
  Country: FR (occurrence: FR)
  Receive Date: 20160121
  Receipt Date: 20160229
  Transmission Date: 20160526
  Serious: Yes (Other)
  Sender: FDA-Public Use
  Company Number: FR-UCBSA-2015042151

PATIENT
  Age: 26 Year
  Sex: Female

DRUGS (1)
  1. KEPPRA [Suspect]
     Active Substance: LEVETIRACETAM
     Indication: EPILEPSY
     Dosage: 750 MG, 2X/DAY (BID)
     Route: 048
     Dates: start: 2015

REACTIONS (8)
  - Abortion spontaneous [Unknown]
  - Petit mal epilepsy [Unknown]
  - Decreased appetite [Unknown]
  - Malaise [Unknown]
  - Seizure [Unknown]
  - Pyrexia [Unknown]
  - Leukocytosis [Unknown]
  - Pregnancy [Unknown]

NARRATIVE: CASE EVENT DATE: 2015
